FAERS Safety Report 7420500-X (Version None)
Quarter: 2011Q2

REPORT INFORMATION
  Report Type: 
  Country: None (occurrence: None)
  Receive Date: 20110418
  Receipt Date: 20110407
  Transmission Date: 20111010
  Serious: Yes (Life-Threatening, Other)
  Sender: FDA-Public Use
  Company Number: JP-SANOFI-AVENTIS-2011SA004172

PATIENT
  Age: 65 Year
  Sex: Male

DRUGS (6)
  1. ELPLAT [Suspect]
     Indication: COLON CANCER METASTATIC
     Route: 041
  2. AVASTIN [Suspect]
     Indication: COLON CANCER METASTATIC
     Route: 041
     Dates: start: 20101019, end: 20101019
  3. AVASTIN [Suspect]
     Route: 041
     Dates: start: 20101129, end: 20101129
  4. GASTER [Concomitant]
  5. FLUOROURACIL [Suspect]
     Indication: COLON CANCER METASTATIC
     Route: 041
  6. CALCIUM LEVOFOLINATE [Suspect]
     Indication: COLON CANCER METASTATIC
     Route: 041

REACTIONS (3)
  - ABSCESS [None]
  - ILEAL STENOSIS [None]
  - ILEAL PERFORATION [None]
